FAERS Safety Report 9969641 (Version 1)
Quarter: 2014Q1

REPORT INFORMATION
  Report Type: Spontaneous
  Country: US (occurrence: None)
  Receive Date: 20140304
  Receipt Date: 20140304
  Transmission Date: 20141002
  Serious: Yes (Life-Threatening, Hospitalization)
  Sender: FDA-Public Use
  Company Number: None

PATIENT
  Age: 66 Year
  Sex: Male
  Weight: 70.9 kg

DRUGS (9)
  1. ADALIMUMAB [Suspect]
     Indication: COLITIS ULCERATIVE
     Route: 058
  2. PROAIR [Concomitant]
  3. AMLODIPINE [Concomitant]
  4. FLOVENT [Concomitant]
  5. PREVACID [Concomitant]
  6. LEVOFLOXACIN [Concomitant]
  7. LISINOPRIL [Concomitant]
  8. SPIRIVA [Concomitant]
  9. AMBIEN [Concomitant]

REACTIONS (5)
  - Pyrexia [None]
  - Sputum discoloured [None]
  - Pulmonary fibrosis [None]
  - Organising pneumonia [None]
  - Interstitial lung disease [None]
